FAERS Safety Report 7550987-3 (Version None)
Quarter: 2011Q2

REPORT INFORMATION
  Report Type: 
  Country: None (occurrence: None)
  Receive Date: 20110616
  Receipt Date: 20110601
  Transmission Date: 20111010
  Serious: Yes (Hospitalization)
  Sender: FDA-Public Use
  Company Number: CA-JNJFOC-20110601949

PATIENT
  Sex: Female
  Weight: 50 kg

DRUGS (3)
  1. METHOTREXATE [Concomitant]
     Route: 065
  2. REMICADE [Suspect]
     Indication: CROHN'S DISEASE
     Route: 042
     Dates: start: 20031001
  3. WARFARIN SODIUM [Concomitant]
     Dosage: DAILY
     Route: 065

REACTIONS (2)
  - SINUS ANTROSTOMY [None]
  - SINUSITIS [None]
